FAERS Safety Report 7813899-3 (Version None)
Quarter: 2011Q4

REPORT INFORMATION
  Report Type: 
  Country: None (occurrence: None)
  Receive Date: 20111014
  Receipt Date: 20111012
  Transmission Date: 20120403
  Serious: Yes (Other)
  Sender: FDA-Public Use
  Company Number: US-PFIZER INC-2011243930

PATIENT

DRUGS (1)
  1. CHANTIX [Suspect]
     Dosage: UNK

REACTIONS (6)
  - CONFUSIONAL STATE [None]
  - EYE MOVEMENT DISORDER [None]
  - IRRITABILITY [None]
  - ABNORMAL DREAMS [None]
  - INSOMNIA [None]
  - AGITATION [None]
